FAERS Safety Report 6424752-4 (Version None)
Quarter: 2009Q4

REPORT INFORMATION
  Report Type: 
  Country: None (occurrence: None)
  Receive Date: 20091103
  Receipt Date: 20091023
  Transmission Date: 20100525
  Serious: Yes (Other)
  Sender: FDA-Public Use
  Company Number: US-AMGEN-US371409

PATIENT

DRUGS (1)
  1. NPLATE [Suspect]
     Indication: DRUG USE FOR UNKNOWN INDICATION
     Route: 058

REACTIONS (2)
  - DRUG TOLERANCE [None]
  - PLATELET COUNT DECREASED [None]
